FAERS Safety Report 8913194 (Version 1)
Quarter: 2012Q4

REPORT INFORMATION
  Report Type: 
  Country: FR (occurrence: FR)
  Receive Date: 20121119
  Receipt Date: 20121119
  Transmission Date: 20130627
  Serious: Yes (Death, Hospitalization, Other)
  Sender: FDA-Public Use
  Company Number: FR-JNJFOC-20121108039

PATIENT
  Age: 80 Year
  Sex: Female

DRUGS (1)
  1. XARELTO [Suspect]
     Indication: ATRIAL FIBRILLATION
     Route: 048

REACTIONS (2)
  - Cerebrovascular accident [Fatal]
  - Haematoma [Fatal]
